FAERS Safety Report 23641742 (Version 1)
Quarter: 2024Q1

REPORT INFORMATION
  Report Type: Spontaneous
  Country: ES (occurrence: ES)
  Receive Date: 20240318
  Receipt Date: 20240318
  Transmission Date: 20240409
  Serious: Yes (Other)
  Sender: FDA-Public Use
  Company Number: ES-AEMPS-1495205

PATIENT
  Age: 30 Year
  Sex: Female

DRUGS (4)
  1. CEFUROXIME [Suspect]
     Active Substance: CEFUROXIME
     Indication: Nasopharyngitis
     Dosage: 500 MILLIGRAM (500.0 MG DU)
     Route: 048
     Dates: start: 20221216, end: 20221216
  2. ATORVASTATIN [Concomitant]
     Active Substance: ATORVASTATIN
     Indication: Diabetes mellitus
     Dosage: 20 MILLIGRAM (20.0 MG CE)
     Route: 048
     Dates: start: 20210217
  3. APIDRA SOLOSTAR [Concomitant]
     Active Substance: INSULIN GLULISINE
     Indication: Diabetes mellitus
     Dosage: UNK (20.0 UI A-DECOCE)
     Route: 058
     Dates: start: 20120808
  4. TOUJEO [Concomitant]
     Active Substance: INSULIN GLARGINE
     Indication: Diabetes mellitus
     Dosage: UNK (34.0 UI C/24 H)
     Route: 058
     Dates: start: 20160317

REACTIONS (3)
  - Rash erythematous [Recovered/Resolved]
  - Self-medication [Recovered/Resolved]
  - Medication error [Recovered/Resolved]

NARRATIVE: CASE EVENT DATE: 20221216
